FAERS Safety Report 16403659 (Version 2)
Quarter: 2019Q2

REPORT INFORMATION
  Report Type: Spontaneous
  Country: BR (occurrence: BR)
  Receive Date: 20190607
  Receipt Date: 20190621
  Transmission Date: 20190711
  Serious: Yes (Death, Other)
  Sender: FDA-Public Use
  Company Number: BR-SA-2019SA129527

PATIENT
  Sex: Male
  Weight: 79.7 kg

DRUGS (2)
  1. CLEXANE [Suspect]
     Active Substance: ENOXAPARIN SODIUM
     Indication: DEEP VEIN THROMBOSIS
  2. CLEXANE [Suspect]
     Active Substance: ENOXAPARIN SODIUM
     Indication: EMBOLISM VENOUS
     Dosage: 60 MG, BID
     Route: 058

REACTIONS (7)
  - Cellulitis [Fatal]
  - Cardiac failure [Fatal]
  - Embolism venous [Unknown]
  - Chronic kidney disease [Fatal]
  - Drug ineffective [Unknown]
  - Deep vein thrombosis [Fatal]
  - Pneumonia [Fatal]
